FAERS Safety Report 4504661-8 (Version None)
Quarter: 2004Q4

REPORT INFORMATION
  Report Type: 
  Country: None (occurrence: None)
  Receive Date: 20041118
  Receipt Date: 20041108
  Transmission Date: 20050328
  Serious: Yes (Other)
  Sender: FDA-Public Use
  Company Number: AU-SOLVAY-00304004015

PATIENT
  Sex: Male

DRUGS (1)
  1. LUVOX [Suspect]
     Indication: ILL-DEFINED DISORDER
     Dosage: DAILY DOSE: 300 MILLIGRAM(S)
     Route: 048

REACTIONS (2)
  - NIGHTMARE [None]
  - SLEEP WALKING [None]
